FAERS Safety Report 21732290 (Version 1)
Quarter: 2022Q4

REPORT INFORMATION
  Report Type: Report from Study
  Country: DE (occurrence: DE)
  Receive Date: 20221215
  Receipt Date: 20221215
  Transmission Date: 20230112
  Serious: Yes (Hospitalization)
  Sender: FDA-Public Use
  Company Number: DE-BRISTOL-MYERS SQUIBB COMPANY-2022-151026

PATIENT
  Age: 80 Year
  Sex: Male
  Weight: 50 kg

DRUGS (14)
  1. OPDIVO [Suspect]
     Active Substance: NIVOLUMAB
     Indication: Oesophageal adenocarcinoma
     Dosage: FREQUENCY: 21
     Route: 042
     Dates: start: 20220912
  2. CISPLATIN [Suspect]
     Active Substance: CISPLATIN
     Indication: Oesophageal adenocarcinoma
     Dosage: FREQUENCY: 21
     Route: 042
     Dates: start: 20220912
  3. FLUOROURACIL [Suspect]
     Active Substance: FLUOROURACIL
     Indication: Oesophageal adenocarcinoma
     Dosage: FREQUENCY: 21
     Route: 042
     Dates: start: 20220912
  4. METFORMIN [Concomitant]
     Active Substance: METFORMIN HYDROCHLORIDE
     Indication: Product used for unknown indication
     Route: 048
  5. MAALOXAN [ALUMINIUM HYDROXIDE GEL;MAGNESIUM HYDROXIDE] [Concomitant]
     Indication: Product used for unknown indication
     Dosage: FREQUENCY:4
     Route: 048
     Dates: start: 20220917
  6. MCP [Concomitant]
     Active Substance: METOCLOPRAMIDE HYDROCHLORIDE
     Indication: Product used for unknown indication
     Dosage: FREQUENCY:3: DOSE:10 GTT
     Route: 048
     Dates: start: 20220917
  7. LOSARTAN [Concomitant]
     Active Substance: LOSARTAN
     Indication: Product used for unknown indication
     Route: 048
  8. MOXONIDINE [Concomitant]
     Active Substance: MOXONIDINE
     Indication: Product used for unknown indication
     Route: 048
  9. PANTOPRAZOLE [Concomitant]
     Active Substance: PANTOPRAZOLE
     Indication: Product used for unknown indication
     Route: 048
  10. ATORVASTATIN [Concomitant]
     Active Substance: ATORVASTATIN
     Indication: Product used for unknown indication
     Route: 048
  11. METAMIZOL [Concomitant]
     Active Substance: METAMIZOLE SODIUM
     Indication: Product used for unknown indication
     Route: 048
  12. GAVISCON [MAGNESIUM ALGINATE;SODIUM ALGINATE] [Concomitant]
     Indication: Product used for unknown indication
     Route: 048
     Dates: start: 20220917
  13. CITALOPRAM [Concomitant]
     Active Substance: CITALOPRAM HYDROBROMIDE
     Indication: Product used for unknown indication
     Route: 048
  14. FENTANYL [Concomitant]
     Active Substance: FENTANYL
     Indication: Product used for unknown indication
     Dosage: DOSE : 75 UNKNOWN
     Route: 003

REACTIONS (1)
  - Fall [Unknown]

NARRATIVE: CASE EVENT DATE: 20221129
